FAERS Safety Report 23445604 (Version 3)
Quarter: 2024Q1

REPORT INFORMATION
  Report Type: Spontaneous
  Country: US (occurrence: US)
  Receive Date: 20240126
  Receipt Date: 20240315
  Transmission Date: 20240410
  Serious: No
  Sender: FDA-Public Use
  Company Number: US-AMGEN-USASP2024015069

PATIENT
  Sex: Female

DRUGS (14)
  1. OTEZLA [Suspect]
     Active Substance: APREMILAST
     Indication: Behcet^s syndrome
     Dosage: 30 MILLIGRAM, BID
     Route: 048
  2. GLUTAMINE [Concomitant]
     Active Substance: GLUTAMINE
     Dosage: UNK
  3. PROGESTERONE [Concomitant]
     Active Substance: PROGESTERONE
  4. LYSINE [Concomitant]
     Active Substance: LYSINE
  5. GINKGO [Concomitant]
     Active Substance: GINKGO
  6. COLLAGEN [Concomitant]
     Active Substance: COLLAGEN
  7. COLCHICINE [Concomitant]
     Active Substance: COLCHICINE
  8. LIOTHYRONINE SODIUM [Concomitant]
     Active Substance: LIOTHYRONINE SODIUM
  9. VITAMIN D3 [Concomitant]
     Active Substance: CHOLECALCIFEROL
  10. PROBIOTICS NOS [Concomitant]
     Active Substance: PROBIOTICS NOS
  11. MELOXICAM [Concomitant]
     Active Substance: MELOXICAM
  12. PREDNISONE [Concomitant]
     Active Substance: PREDNISONE
  13. LEVOTHYROXINE SODIUM [Concomitant]
     Active Substance: LEVOTHYROXINE SODIUM
  14. PROTEIN [Concomitant]
     Active Substance: PROTEIN
     Dosage: UNK

REACTIONS (5)
  - Nasopharyngitis [Not Recovered/Not Resolved]
  - Headache [Not Recovered/Not Resolved]
  - Diarrhoea [Not Recovered/Not Resolved]
  - Product dose omission issue [Unknown]
  - Adverse reaction [Unknown]
